FAERS Safety Report 7900231-X (Version None)
Quarter: 2011Q4

REPORT INFORMATION
  Report Type: 
  Country: None (occurrence: None)
  Receive Date: 20111104
  Receipt Date: 20111026
  Transmission Date: 20120403
  Serious: Yes (Hospitalization, Other)
  Sender: FDA-Public Use
  Company Number: DKLU1074150

PATIENT
  Age: 29 Year
  Sex: Female

DRUGS (2)
  1. SABRIL [Suspect]
     Indication: SIMPLE PARTIAL SEIZURES
     Dosage: 1500 MG MILLIGRAM(S), 2 IN 1 D, ORAL
     Route: 048
     Dates: start: 20110926
  2. SABRIL [Suspect]
     Indication: EPILEPSY
     Dosage: 1500 MG MILLIGRAM(S), 2 IN 1 D, ORAL
     Route: 048
     Dates: start: 20110926

REACTIONS (4)
  - DRUG INEFFECTIVE [None]
  - STATUS EPILEPTICUS [None]
  - PARTIAL SEIZURES [None]
  - COMA [None]
